FAERS Safety Report 17372485 (Version 2)
Quarter: 2020Q1

REPORT INFORMATION
  Report Type: Report from Study
  Country: AR (occurrence: AR)
  Receive Date: 20200205
  Receipt Date: 20200206
  Transmission Date: 20200409
  Serious: Yes (Hospitalization)
  Sender: FDA-Public Use
  Company Number: AR-JNJFOC-20200150061

PATIENT
  Age: 60 Year
  Sex: Female
  Weight: 70.9 kg

DRUGS (1)
  1. ESKETAMINE [Suspect]
     Active Substance: ESKETAMINE
     Indication: DEPRESSION
     Dates: start: 20171027

REACTIONS (1)
  - Vaginal prolapse [Recovered/Resolved]

NARRATIVE: CASE EVENT DATE: 20200127
